FAERS Safety Report 16758936 (Version 1)
Quarter: 2019Q4

REPORT INFORMATION
  Report Type: Spontaneous
  Country: US (occurrence: US)
  Receive Date: 20190829
  Receipt Date: 20190829
  Transmission Date: 20200122
  Serious: No
  Sender: FDA-Public Use
  Company Number: None

PATIENT
  Age: 69 Year
  Sex: Male
  Weight: 72.9 kg

DRUGS (1)
  1. FIRMAGON [Suspect]
     Active Substance: DEGARELIX ACETATE
     Indication: PROSTATE CANCER
     Dosage: ?          OTHER FREQUENCY:MONTHLY;OTHER ROUTE:ABDOMINAL INJECTION?
     Dates: start: 20190320, end: 20190705

REACTIONS (7)
  - Lethargy [None]
  - Musculoskeletal stiffness [None]
  - Night sweats [None]
  - Pain in extremity [None]
  - Hot flush [None]
  - Irritability [None]
  - Neoplasm malignant [None]

NARRATIVE: CASE EVENT DATE: 20190320
